FAERS Safety Report 7349531-5 (Version None)
Quarter: 2011Q1

REPORT INFORMATION
  Report Type: 
  Country: None (occurrence: None)
  Receive Date: 20110314
  Receipt Date: 20110203
  Transmission Date: 20110831
  Serious: No
  Sender: FDA-Public Use
  Company Number: US-ABBOTT-10P-163-0693737-00

PATIENT
  Age: 39 Year
  Sex: Male

DRUGS (4)
  1. PAXIL [Concomitant]
     Indication: PRODUCT USED FOR UNKNOWN INDICATION
     Dosage: UNKNOWN
  2. DEPAKOTE [Suspect]
     Indication: BIPOLAR DISORDER
     Dosage: UNKNOWN
     Dates: end: 20110201
  3. RISPERDAL [Concomitant]
     Indication: PRODUCT USED FOR UNKNOWN INDICATION
  4. DEPAKOTE [Suspect]
     Dates: start: 20110201

REACTIONS (4)
  - WEIGHT DECREASED [None]
  - TREMOR [None]
  - DRUG LEVEL INCREASED [None]
  - INCONTINENCE [None]
